FAERS Safety Report 6014701-5 (Version None)
Quarter: 2008Q4

REPORT INFORMATION
  Report Type: 
  Country: None (occurrence: None)
  Receive Date: 20081216
  Receipt Date: 20080909
  Transmission Date: 20090506
  Serious: Yes (Other)
  Sender: FDA-Public Use
  Company Number: US-WYE-H05923008

PATIENT
  Age: 44 Year
  Sex: Female
  Weight: 59.02 kg

DRUGS (1)
  1. EFFEXOR XR [Suspect]
     Indication: MAJOR DEPRESSION
     Dosage: 300-450 MG DAILY, ORAL
     Route: 048
     Dates: start: 20050921, end: 20080505

REACTIONS (1)
  - EOSINOPHILIC PNEUMONIA [None]
